FAERS Safety Report 9555020 (Version 1)
Quarter: 2013Q3

REPORT INFORMATION
  Report Type: Spontaneous
  Country: US (occurrence: None)
  Receive Date: 20130815
  Receipt Date: 20130815
  Transmission Date: 20140515
  Serious: Yes (Other)
  Sender: FDA-Public Use
  Company Number: ADR-2013-00098

PATIENT
  Age: 61 Year
  Sex: Male

DRUGS (1)
  1. BACLOFEN INTRATHECAL [Suspect]
     Indication: MOVEMENT DISORDER
     Dosage: 114.1 MCG/DAY FLEX

REACTIONS (1)
  - Infection [None]
